FAERS Safety Report 9207827 (Version 2)
Quarter: 2013Q2

REPORT INFORMATION
  Report Type: Report from Study
  Country: DE (occurrence: DE)
  Receive Date: 20130403
  Receipt Date: 20130503
  Transmission Date: 20140414
  Serious: Yes (Hospitalization)
  Sender: FDA-Public Use
  Company Number: DE-FRI-1000043820

PATIENT
  Sex: Female
  Weight: 60 kg

DRUGS (9)
  1. MEMANTINE [Suspect]
     Indication: DEMENTIA ALZHEIMER^S TYPE
     Dosage: 20 MG
     Route: 048
     Dates: start: 20120801
  2. MEMANTINE [Suspect]
     Dosage: 5 MG
     Route: 048
     Dates: start: 20120711, end: 20120717
  3. MEMANTINE [Suspect]
     Dosage: 10 MG
     Route: 048
     Dates: start: 20120718, end: 20120724
  4. MEMANTINE [Suspect]
     Dosage: 15 MG
     Route: 048
     Dates: start: 20120725, end: 20120731
  5. EUTHYROX [Concomitant]
     Indication: HYPOTHYROIDISM
     Dosage: 50 UG
  6. CONCOR COR [Concomitant]
     Indication: HYPERTENSION
     Dosage: 3.75MG
     Route: 048
  7. HERZ ASS [Concomitant]
     Indication: CORONARY ARTERY DISEASE
  8. MAGNETRANS [Concomitant]
     Dosage: 150 MG
  9. CALCIMAGON D3 [Concomitant]
     Dosage: 500MG

REACTIONS (1)
  - Brain stem infarction [Recovered/Resolved]
